FAERS Safety Report 15656261 (Version 1)
Quarter: 2018Q4

REPORT INFORMATION
  Report Type: Spontaneous
  Country: GB (occurrence: GB)
  Receive Date: 20181126
  Receipt Date: 20181126
  Transmission Date: 20190205
  Serious: Yes (Other)
  Sender: FDA-Public Use
  Company Number: GB-IPSEN BIOPHARMACEUTICALS, INC.-2018-16951

PATIENT
  Age: 71 Year
  Sex: Male

DRUGS (2)
  1. DECAPEPTYL [Suspect]
     Active Substance: TRIPTORELIN
     Indication: PROSTATE CANCER
     Dosage: 3 MILLIGRAM
  2. DECAPEPTYL [Suspect]
     Active Substance: TRIPTORELIN
     Dosage: 11.25 MILLIGRAM

REACTIONS (3)
  - Metastasis [Unknown]
  - Incorrect product administration duration [Unknown]
  - Gingival pain [Unknown]
